FAERS Safety Report 4455093-2 (Version None)
Quarter: 2004Q3

REPORT INFORMATION
  Report Type: 
  Country: None (occurrence: None)
  Receive Date: 20040917
  Receipt Date: 20040830
  Transmission Date: 20050211
  Serious: Yes (Hospitalization)
  Sender: FDA-Public Use
  Company Number: WAES 0211USA01959

PATIENT
  Age: 70 Year
  Sex: Male

DRUGS (5)
  1. COZAAR [Suspect]
     Indication: HYPERTENSION
     Dosage: 50 MG/DAILY, PO
     Route: 048
     Dates: start: 20011201
  2. BASEN [Concomitant]
  3. GLIMICRON [Concomitant]
  4. ZOCOR [Concomitant]
  5. ALLOPURINOL [Concomitant]

REACTIONS (5)
  - CONDITION AGGRAVATED [None]
  - DIABETES MELLITUS [None]
  - HYPERKALAEMIA [None]
  - HYPERLIPIDAEMIA [None]
  - NEPHRECTOMY [None]
